FAERS Safety Report 19882474 (Version 1)
Quarter: 2021Q3

REPORT INFORMATION
  Report Type: Spontaneous
  Country: CN (occurrence: CN)
  Receive Date: 20210924
  Receipt Date: 20210924
  Transmission Date: 20211014
  Serious: Yes (Life-Threatening)
  Sender: FDA-Public Use
  Company Number: CN-ANIPHARMA-2021-CN-000309

PATIENT
  Age: 76 Year
  Sex: Male
  Weight: 65 kg

DRUGS (2)
  1. BICALUTAMIDE. [Suspect]
     Active Substance: BICALUTAMIDE
     Indication: PROSTATE CANCER
     Dosage: 50 MG DAILY
     Route: 048
     Dates: start: 20210824, end: 20210824
  2. LEUPRORELIN ACETATE MICROSPHERES SUSTAINED RELEASE [Concomitant]
     Active Substance: LEUPROLIDE ACETATE
     Dosage: 3.75 MG DAILY
     Route: 058
     Dates: start: 20210824, end: 20210824

REACTIONS (2)
  - Haemoglobin decreased [Not Recovered/Not Resolved]
  - Creatinine renal clearance decreased [Not Recovered/Not Resolved]

NARRATIVE: CASE EVENT DATE: 20210824
